FAERS Safety Report 16137075 (Version 1)
Quarter: 2019Q2

REPORT INFORMATION
  Report Type: Report from Study
  Country: FR (occurrence: FR)
  Receive Date: 20190401
  Receipt Date: 20190401
  Transmission Date: 20190711
  Serious: Yes (Death, Other)
  Sender: FDA-Public Use
  Company Number: FR-ROCHE-2290394

PATIENT

DRUGS (5)
  1. OXALIPLATIN. [Suspect]
     Active Substance: OXALIPLATIN
     Indication: COLORECTAL CANCER METASTATIC
     Route: 065
  2. AFLIBERCEPT [Suspect]
     Active Substance: AFLIBERCEPT
     Indication: COLORECTAL CANCER METASTATIC
     Route: 065
  3. FOLINIC ACID [Suspect]
     Active Substance: LEUCOVORIN
     Indication: COLORECTAL CANCER METASTATIC
     Route: 065
  4. 5-FLUOROURACIL [Suspect]
     Active Substance: FLUOROURACIL
     Indication: COLORECTAL CANCER METASTATIC
     Route: 065
  5. CAPECITABINE. [Suspect]
     Active Substance: CAPECITABINE
     Indication: COLORECTAL CANCER METASTATIC
     Route: 065

REACTIONS (20)
  - Hypertension [Unknown]
  - Proteinuria [Unknown]
  - Anaemia [Unknown]
  - Embolism venous [Unknown]
  - Fatigue [Unknown]
  - Gastrointestinal perforation [Unknown]
  - Febrile neutropenia [Unknown]
  - Embolism arterial [Unknown]
  - Haemorrhage [Unknown]
  - Neutrophil count decreased [Unknown]
  - Pulmonary embolism [Unknown]
  - Neutropenic sepsis [Unknown]
  - Palmar-plantar erythrodysaesthesia syndrome [Unknown]
  - Fistula [Unknown]
  - Cerebrovascular accident [Fatal]
  - Peripheral sensory neuropathy [Unknown]
  - Platelet count decreased [Unknown]
  - Vomiting [Unknown]
  - Stomatitis [Unknown]
  - Alopecia [Unknown]
